FAERS Safety Report 5568644-1 (Version None)
Quarter: 2007Q4

REPORT INFORMATION
  Report Type: 
  Country: None (occurrence: None)
  Receive Date: 20071220
  Receipt Date: 20071210
  Transmission Date: 20080405
  Serious: Yes (Hospitalization)
  Sender: FDA-Public Use
  Company Number: PHHO2007DE19472

PATIENT
  Age: 59 Year
  Sex: Female
  Weight: 57 kg

DRUGS (6)
  1. RAD001 VS PLACEBO [Suspect]
     Indication: CARCINOID TUMOUR
     Dosage: DOUBLE BLIND
     Route: 048
     Dates: start: 20071010, end: 20071120
  2. SANDOSTATIN LAR [Suspect]
     Indication: CARCINOID TUMOUR
     Dosage: DOUBLE BLIND
     Route: 048
     Dates: start: 20071010, end: 20071120
  3. VITAMIN B-12 [Concomitant]
  4. METOPROLOL SUCCINATE [Concomitant]
  5. CARMEN [Concomitant]
  6. FERRO ^SANOL^ [Concomitant]

REACTIONS (3)
  - ILEUS [None]
  - NAUSEA [None]
  - VOMITING [None]
